FAERS Safety Report 10850367 (Version 1)
Quarter: 2015Q1

REPORT INFORMATION
  Report Type: Spontaneous
  Country: DE (occurrence: DE)
  Receive Date: 20150222
  Receipt Date: 20150222
  Transmission Date: 20150721
  Serious: Yes (Congenital Anomaly)
  Sender: FDA-Public Use
  Company Number: GXKR2015DE001058

PATIENT

DRUGS (4)
  1. L-THYROXINE//LEVOTHYROXINE [Concomitant]
     Indication: AUTOIMMUNE THYROIDITIS
     Dosage: MATERNAL DOSE (0.-27. GESTATIONAL WEEK): 75 [?G/D]
     Route: 064
  2. SERTRALINE [Suspect]
     Active Substance: SERTRALINE HYDROCHLORIDE
     Indication: ANXIETY
     Dosage: MATERNAL DOSE (0. - 27 GESTATIONAL WEEK): 100 [MG/D]
     Route: 064
  3. MARCUMAR [Suspect]
     Active Substance: PHENPROCOUMON
     Indication: FACTOR V DEFICIENCY
     Dosage: MATERNAL DOSE (0.-24.4 GESTATIONAL WEEK): 6 [MG/D (2 X 3 MG/D)]
     Route: 064
  4. CLEXANE [Concomitant]
     Active Substance: ENOXAPARIN SODIUM
     Indication: FACTOR V DEFICIENCY
     Dosage: MATERNAL DOSE (824.5 - 27 GESTATIONAL WEEK): UNKNOWN
     Route: 064

REACTIONS (3)
  - Congenital central nervous system anomaly [Not Recovered/Not Resolved]
  - Dandy-Walker syndrome [Not Recovered/Not Resolved]
  - Dysmorphism [Not Recovered/Not Resolved]
